FAERS Safety Report 19199910 (Version 4)
Quarter: 2022Q4

REPORT INFORMATION
  Report Type: Spontaneous
  Country: US (occurrence: US)
  Receive Date: 20210430
  Receipt Date: 20221115
  Transmission Date: 20230113
  Serious: Yes (Hospitalization)
  Sender: FDA-Public Use
  Company Number: US-SANOFI-00577432

PATIENT
  Age: 63 Year
  Sex: Female

DRUGS (3)
  1. DUPIXENT [Suspect]
     Active Substance: DUPILUMAB
     Indication: Eczema
     Dosage: 300 MG, QOW
     Route: 058
  2. DUPIXENT [Suspect]
     Active Substance: DUPILUMAB
     Dosage: OTHER
     Route: 058
     Dates: start: 20201010
  3. DUPIXENT [Suspect]
     Active Substance: DUPILUMAB
     Dosage: 300 MG, OTHER
     Route: 058
     Dates: start: 2022

REACTIONS (2)
  - Road traffic accident [Unknown]
  - Eczema [Unknown]

NARRATIVE: CASE EVENT DATE: 20210101
